FAERS Safety Report 7146405-X (Version None)
Quarter: 2010Q4

REPORT INFORMATION
  Report Type: 
  Country: None (occurrence: None)
  Receive Date: 20101208
  Receipt Date: 20100702
  Transmission Date: 20110411
  Serious: No
  Sender: FDA-Public Use
  Company Number: US-BRISTOL-MYERS SQUIBB COMPANY-15119803

PATIENT
  Age: 61 Year
  Sex: Male
  Weight: 113 kg

DRUGS (14)
  1. PRAVACHOL [Suspect]
     Indication: BLOOD CHOLESTEROL INCREASED
     Dosage: 80MG A? TABLET
     Route: 048
  2. GLUCOPHAGE [Concomitant]
  3. MONOPRIL [Concomitant]
  4. ATENOLOL [Concomitant]
  5. PROCARDIA [Concomitant]
  6. SINGULAIR [Concomitant]
  7. COZAAR [Concomitant]
  8. KLONOPIN [Concomitant]
  9. VITAMIN E [Concomitant]
  10. ASCORBIC ACID [Concomitant]
  11. VITAMIN B-12 [Concomitant]
  12. COQ10 [Concomitant]
  13. BUFFERIN [Concomitant]
  14. QVAR 40 [Concomitant]
     Dosage: QVAR 80 SPRAY MDI

REACTIONS (2)
  - ABDOMINAL PAIN UPPER [None]
  - WEIGHT DECREASED [None]
